FAERS Safety Report 10382344 (Version 1)
Quarter: 2014Q3

REPORT INFORMATION
  Report Type: Spontaneous
  Country: US (occurrence: None)
  Receive Date: 20140811
  Receipt Date: 20140811
  Transmission Date: 20150326
  Serious: Yes (Disabling, Other)
  Sender: FDA-Public Use
  Company Number: 201408003

PATIENT
  Age: 46 Year
  Sex: Male

DRUGS (1)
  1. TESTIM [Suspect]
     Active Substance: TESTOSTERONE
     Indication: BLOOD TESTOSTERONE DECREASED
     Route: 062
     Dates: start: 201103, end: 201311

REACTIONS (5)
  - Disability [None]
  - Pain [None]
  - Arterial stenosis [None]
  - Anxiety [None]
  - Anhedonia [None]

NARRATIVE: CASE EVENT DATE: 20130911
